FAERS Safety Report 14850665 (Version 1)
Quarter: 2018Q2

REPORT INFORMATION
  Report Type: Report from Study
  Country: US (occurrence: US)
  Receive Date: 20180506
  Receipt Date: 20180506
  Transmission Date: 20180711
  Serious: No
  Sender: FDA-Public Use
  Company Number: US-IPSEN BIOPHARMACEUTICALS, INC.-2018-03296

PATIENT
  Sex: Female

DRUGS (1)
  1. SOMATULINE AUTOGEL 120MG [Suspect]
     Active Substance: LANREOTIDE ACETATE
     Indication: PRODUCT USED FOR UNKNOWN INDICATION
     Dosage: 120 MG
     Route: 058

REACTIONS (6)
  - Injection site irritation [Unknown]
  - Diarrhoea [Unknown]
  - Injection site pain [Recovered/Resolved]
  - Injection site mass [Unknown]
  - Injection site urticaria [Unknown]
  - Injection site pruritus [Unknown]
